FAERS Safety Report 9557082 (Version 1)
Quarter: 2013Q3

REPORT INFORMATION
  Report Type: Spontaneous
  Country: CH (occurrence: CH)
  Receive Date: 20130926
  Receipt Date: 20130926
  Transmission Date: 20140515
  Serious: Yes (Hospitalization)
  Sender: FDA-Public Use
  Company Number: CH-SANOFI-AVENTIS-2013SA092554

PATIENT
  Age: 56 Year
  Sex: Male
  Weight: 71 kg

DRUGS (6)
  1. PLAVIX [Suspect]
     Indication: PROPHYLAXIS
     Route: 048
     Dates: start: 20130705, end: 20130726
  2. ASPIRIN CARDIO [Concomitant]
     Route: 048
  3. SORTIS [Concomitant]
     Route: 048
  4. CANDESARTAN [Concomitant]
     Route: 048
  5. HUMALOG [Concomitant]
     Route: 058
  6. LANTUS [Concomitant]
     Route: 058

REACTIONS (7)
  - Pyrexia [Recovered/Resolved]
  - C-reactive protein increased [Recovering/Resolving]
  - Chills [Recovered/Resolved]
  - Decreased appetite [Recovered/Resolved]
  - Fatigue [Recovered/Resolved]
  - Headache [Recovered/Resolved]
  - Cholestatic liver injury [Recovering/Resolving]
